APPROVED DRUG PRODUCT: OCUSULF-30
Active Ingredient: SULFACETAMIDE SODIUM
Strength: 30%
Dosage Form/Route: SOLUTION/DROPS;OPHTHALMIC
Application: A080660 | Product #002
Applicant: MIZA PHARMACEUTICALS USA INC
Approved: Approved Prior to Jan 1, 1982 | RLD: No | RS: No | Type: DISCN